FAERS Safety Report 20174326 (Version 1)
Quarter: 2021Q4

REPORT INFORMATION
  Report Type: Spontaneous
  Country: FR (occurrence: FR)
  Receive Date: 20211213
  Receipt Date: 20211213
  Transmission Date: 20220303
  Serious: Yes (Hospitalization)
  Sender: FDA-Public Use
  Company Number: FR-SUN PHARMACEUTICAL INDUSTRIES LTD-2021RR-319647

PATIENT
  Age: 83 Year
  Sex: Male

DRUGS (2)
  1. ESOMEPRAZOLE [Suspect]
     Active Substance: ESOMEPRAZOLE
     Indication: Prophylaxis against gastrointestinal ulcer
     Dosage: 20 MILLIGRAM, UNK
     Route: 048
     Dates: start: 20210817, end: 20210913
  2. RIFAMPIN [Suspect]
     Active Substance: RIFAMPIN
     Indication: Paraspinal abscess
     Dosage: 600 MILLIGRAM, QID
     Route: 048
     Dates: start: 20210817, end: 20210913

REACTIONS (2)
  - Tubulointerstitial nephritis [Not Recovered/Not Resolved]
  - Rash [Recovered/Resolved]

NARRATIVE: CASE EVENT DATE: 20210830
